FAERS Safety Report 12432240 (Version 1)
Quarter: 2016Q2

REPORT INFORMATION
  Report Type: Spontaneous
  Country: US (occurrence: US)
  Receive Date: 20160603
  Receipt Date: 20160603
  Transmission Date: 20160815
  Serious: No
  Sender: FDA-Public Use
  Company Number: US-TEVA-661679ACC

PATIENT
  Age: 23 Year
  Sex: Female
  Weight: 59.47 kg

DRUGS (1)
  1. PARAGARD T 380A [Suspect]
     Active Substance: COPPER
     Indication: CONTRACEPTION
     Dates: start: 20141014, end: 20160512

REACTIONS (2)
  - Device expulsion [Recovered/Resolved]
  - Cervical dysplasia [Unknown]

NARRATIVE: CASE EVENT DATE: 20160316
